FAERS Safety Report 15994604 (Version 1)
Quarter: 2019Q1

REPORT INFORMATION
  Report Type: Spontaneous
  Country: GB (occurrence: GB)
  Receive Date: 20190222
  Receipt Date: 20190222
  Transmission Date: 20190418
  Serious: Yes (Other)
  Sender: FDA-Public Use
  Company Number: GB-SUN PHARMACEUTICAL INDUSTRIES LTD-2019RR-199877

PATIENT
  Age: 48 Year
  Sex: Female

DRUGS (4)
  1. OCTREOTIDE. [Suspect]
     Active Substance: OCTREOTIDE
     Indication: MALIGNANT GASTROINTESTINAL OBSTRUCTION
     Dosage: 500 MICROGRAM
     Route: 058
     Dates: start: 20190119, end: 20190122
  2. OXYCODONE [Concomitant]
     Active Substance: OXYCODONE
     Indication: PRODUCT USED FOR UNKNOWN INDICATION
     Dosage: ()
     Route: 065
  3. BUSCOPAN [Concomitant]
     Active Substance: BUTYLSCOPOLAMINE BROMIDE
     Indication: PRODUCT USED FOR UNKNOWN INDICATION
     Dosage: ()
     Route: 065
  4. LEVOMEPROMAZINE [Concomitant]
     Active Substance: LEVOMEPROMAZINE
     Indication: PRODUCT USED FOR UNKNOWN INDICATION
     Dosage: ()
     Route: 065

REACTIONS (1)
  - Parotid gland enlargement [Not Recovered/Not Resolved]

NARRATIVE: CASE EVENT DATE: 20190121
